FAERS Safety Report 17655682 (Version 1)
Quarter: 2020Q2

REPORT INFORMATION
  Report Type: Spontaneous
  Country: US (occurrence: US)
  Receive Date: 20200410
  Receipt Date: 20200410
  Transmission Date: 20200713
  Serious: Yes (Other)
  Sender: FDA-Public Use
  Company Number: US-APOTEX-2020AP009592

PATIENT
  Age: 65 Year
  Sex: Female

DRUGS (3)
  1. DASATINIB. [Suspect]
     Active Substance: DASATINIB
     Indication: CHRONIC MYELOID LEUKAEMIA
     Dosage: 50 MG, QD
     Route: 065
  2. IBRUTINIB [Concomitant]
     Active Substance: IBRUTINIB
     Indication: CHRONIC MYELOID LEUKAEMIA
     Dosage: 420 MG, QD
     Route: 065
  3. DASATINIB. [Suspect]
     Active Substance: DASATINIB
     Dosage: 20 MG, QD
     Route: 065

REACTIONS (1)
  - Cytopenia [Recovered/Resolved]
